FAERS Safety Report 4338967-2 (Version None)
Quarter: 2004Q1

REPORT INFORMATION
  Report Type: 
  Country: None (occurrence: None)
  Receive Date: 20040329
  Receipt Date: 20040206
  Transmission Date: 20041129
  Serious: No
  Sender: FDA-Public Use
  Company Number: USA040258546

PATIENT
  Sex: Male

DRUGS (4)
  1. STRATTERA [Suspect]
     Indication: ATTENTION DEFICIT/HYPERACTIVITY DISORDER
     Dosage: 40 MG
     Route: 048
     Dates: start: 20030201, end: 20040101
  2. CELEBREX [Concomitant]
  3. ADDERALL 10 [Concomitant]
  4. ANTIDEPRESSANT [Concomitant]

REACTIONS (3)
  - ANXIETY [None]
  - MOOD SWINGS [None]
  - PERSONALITY CHANGE [None]
